FAERS Safety Report 16163889 (Version 2)
Quarter: 2019Q2

REPORT INFORMATION
  Report Type: Spontaneous
  Country: US (occurrence: US)
  Receive Date: 20190405
  Receipt Date: 20190510
  Transmission Date: 20190711
  Serious: No
  Sender: FDA-Public Use
  Company Number: US-ASTRAZENECA-2019SE40087

PATIENT
  Age: 461 Month
  Sex: Male
  Weight: 63.5 kg

DRUGS (1)
  1. PULMICORT FLEXHALER [Suspect]
     Active Substance: BUDESONIDE
     Indication: ASTHMA
     Route: 055
     Dates: start: 20190104

REACTIONS (4)
  - Device issue [Unknown]
  - Chest discomfort [Unknown]
  - Product dispensing error [Unknown]
  - Dyspnoea [Unknown]

NARRATIVE: CASE EVENT DATE: 201902
